FAERS Safety Report 9106427 (Version 1)
Quarter: 2013Q1

REPORT INFORMATION
  Report Type: Spontaneous
  Country: LT (occurrence: LT)
  Receive Date: 20130221
  Receipt Date: 20130221
  Transmission Date: 20140127
  Serious: Yes (Other)
  Sender: FDA-Public Use
  Company Number: LT-ROCHE-1193507

PATIENT
  Age: 6 Year
  Sex: Female

DRUGS (2)
  1. TAMIFLU [Suspect]
     Indication: INFLUENZA
     Dosage: 3/5 OF 75MG CAPSULE
     Route: 048
     Dates: start: 20130213, end: 20130213
  2. PARACETAMOL [Concomitant]
     Indication: PYREXIA
     Route: 048

REACTIONS (3)
  - Hallucination, auditory [Recovered/Resolved]
  - Anxiety [Recovered/Resolved]
  - Malaise [Recovered/Resolved]
